FAERS Safety Report 4282934-4 (Version None)
Quarter: 2004Q1

REPORT INFORMATION
  Report Type: 
  Country: None (occurrence: None)
  Receive Date: 20040130
  Receipt Date: 20031226
  Transmission Date: 20041129
  Serious: Yes (Death)
  Sender: FDA-Public Use
  Company Number: JP-ROCHE-354849

PATIENT
  Age: 84 Year
  Sex: Female

DRUGS (6)
  1. TAMIFLU [Suspect]
     Route: 048
  2. MEIACT [Concomitant]
  3. SHO-SAIKO-TO [Concomitant]
     Dosage: CHINESE HERBAL MEDICINE.
  4. FLU VACCINE [Concomitant]
     Dates: start: 20031122, end: 20031122
  5. PL [Concomitant]
     Dosage: ALSO DESCRIBED AS A NON-PYRINE PREPARATION FOR COLD SYNDROME.
  6. KAKKON-TO [Concomitant]
     Dosage: A CHINESE HERBAL MEDICINE.

REACTIONS (5)
  - BLOOD LACTATE DEHYDROGENASE INCREASED [None]
  - BLOOD POTASSIUM INCREASED [None]
  - LYMPHOCYTE COUNT INCREASED [None]
  - NEUTROPHIL COUNT INCREASED [None]
  - PULMONARY FIBROSIS [None]
